FAERS Safety Report 25135160 (Version 2)
Quarter: 2025Q2

REPORT INFORMATION
  Report Type: Spontaneous
  Country: FR (occurrence: None)
  Receive Date: 20250328
  Receipt Date: 20250401
  Transmission Date: 20250717
  Serious: No
  Sender: INCYTE
  Company Number: FR-002147023-NVSC2025FR049723

PATIENT

DRUGS (2)
  1. RUXOLITINIB [Suspect]
     Active Substance: RUXOLITINIB
     Indication: Acute graft versus host disease
     Dosage: 2 MG/M2, BID
  2. RUXOLITINIB [Suspect]
     Active Substance: RUXOLITINIB
     Dosage: 1.5 MG, BID
     Route: 065

REACTIONS (2)
  - Off label use [Unknown]
  - Toxicity to various agents [Unknown]
